FAERS Safety Report 5176490-6 (Version None)
Quarter: 2006Q4

REPORT INFORMATION
  Report Type: 
  Country: None (occurrence: None)
  Receive Date: 20061215
  Receipt Date: 20010619
  Transmission Date: 20070319
  Serious: Yes (Life-Threatening, Hospitalization)
  Sender: FDA-Public Use
  Company Number: FR-ROCHE-262851

PATIENT
  Sex: Female
  Weight: 1.2 kg

DRUGS (11)
  1. INVIRASE [Suspect]
     Indication: HIV INFECTION
  2. BACTRIM [Suspect]
     Indication: DRUG USE FOR UNKNOWN INDICATION
  3. LOXEN [Suspect]
     Indication: PREMATURE LABOUR
     Dosage: GIVEN AT 24 WEEKS OF PREGNANCY (PREMATURE LABOUR).
  4. RETROVIR [Suspect]
     Indication: HIV INFECTION
  5. NORVIR [Suspect]
     Indication: HIV INFECTION
  6. RETROVIR [Suspect]
  7. ZERIT [Suspect]
     Indication: HIV INFECTION
  8. VIDEX [Suspect]
     Indication: HIV INFECTION
  9. TRIFLUCAN [Concomitant]
  10. CELESTENE [Concomitant]
     Indication: PREMATURE LABOUR
  11. SALBUMOL [Concomitant]
     Dosage: GIVEN AT 29 WEEKS OF PREGNANCY (PREMATURE LABOUR).

REACTIONS (8)
  - ALANINE AMINOTRANSFERASE INCREASED [None]
  - DRUG EXPOSURE DURING PREGNANCY [None]
  - ENTEROCOLITIS [None]
  - NECROTISING COLITIS [None]
  - NERVOUS SYSTEM DISORDER [None]
  - PREMATURE BABY [None]
  - SPEECH DISORDER DEVELOPMENTAL [None]
  - THROMBOCYTHAEMIA [None]
